FAERS Safety Report 7671038-6 (Version None)
Quarter: 2011Q3

REPORT INFORMATION
  Report Type: 
  Country: None (occurrence: None)
  Receive Date: 20110805
  Receipt Date: 20110805
  Transmission Date: 20111222
  Serious: No
  Sender: FDA-Public Use
  Company Number: None

PATIENT
  Sex: Female
  Weight: 61.2356 kg

DRUGS (1)
  1. FORTEO [Suspect]
     Indication: OSTEOPOROSIS
     Dosage: FORTEO 20MCG QD SC
     Route: 058
     Dates: start: 20110201, end: 20110601

REACTIONS (5)
  - GAIT DISTURBANCE [None]
  - PAIN [None]
  - MYALGIA [None]
  - INSOMNIA [None]
  - NAUSEA [None]
